FAERS Safety Report 13416597 (Version 2)
Quarter: 2018Q4

REPORT INFORMATION
  Report Type: Spontaneous
  Country: US (occurrence: US)
  Receive Date: 20170406
  Receipt Date: 20181109
  Transmission Date: 20190204
  Serious: Yes (Hospitalization)
  Sender: FDA-Public Use
  Company Number: US-JNJFOC-20170404742

PATIENT
  Age: 47 Year
  Sex: Female
  Weight: 66.23 kg

DRUGS (1)
  1. LEVAQUIN [Suspect]
     Active Substance: LEVOFLOXACIN
     Indication: PRODUCT USED FOR UNKNOWN INDICATION
     Route: 048
     Dates: start: 20070104, end: 20070110

REACTIONS (1)
  - Aortic aneurysm [Unknown]

NARRATIVE: CASE EVENT DATE: 20070316
